FAERS Safety Report 20098546 (Version 1)
Quarter: 2021Q4

REPORT INFORMATION
  Report Type: Spontaneous
  Country: US (occurrence: US)
  Receive Date: 20211122
  Receipt Date: 20211122
  Transmission Date: 20220304
  Serious: Yes (Other)
  Sender: FDA-Public Use
  Company Number: US-BRACCO-2021US00261

PATIENT
  Age: 30 Year
  Sex: Female

DRUGS (3)
  1. LUMASON [Suspect]
     Active Substance: SULFUR HEXAFLUORIDE
     Indication: Echocardiogram
     Dosage: 2-3 ML, SINGLE
     Dates: start: 20210123, end: 20210123
  2. LUMASON [Suspect]
     Active Substance: SULFUR HEXAFLUORIDE
     Indication: Echocardiogram
     Dosage: 2-3 ML, SINGLE
     Dates: start: 20210123, end: 20210123
  3. LUMASON [Suspect]
     Active Substance: SULFUR HEXAFLUORIDE
     Indication: Echocardiogram
     Dosage: 2-3 ML, SINGLE
     Dates: start: 20210123, end: 20210123

REACTIONS (3)
  - Throat tightness [Unknown]
  - Swelling face [Unknown]
  - Vomiting [Unknown]

NARRATIVE: CASE EVENT DATE: 20210123
